FAERS Safety Report 14076708 (Version 2)
Quarter: 2017Q4

REPORT INFORMATION
  Report Type: Spontaneous
  Country: FR (occurrence: FR)
  Receive Date: 20171011
  Receipt Date: 20171025
  Transmission Date: 20180321
  Serious: Yes (Disabling)
  Sender: FDA-Public Use
  Company Number: FR-ALLERGAN-1757349US

PATIENT
  Age: 67 Year
  Sex: Male

DRUGS (2)
  1. SILODOSIN - BP [Suspect]
     Active Substance: SILODOSIN
     Indication: BENIGN PROSTATIC HYPERPLASIA
     Dosage: 8 MG, QD
     Route: 048
     Dates: start: 201703, end: 201707
  2. SILODOSIN - BP [Suspect]
     Active Substance: SILODOSIN
     Dosage: 8 MG, QD
     Route: 048
     Dates: start: 20171002

REACTIONS (3)
  - Vertigo [Unknown]
  - Meniere^s disease [Unknown]
  - Tinnitus [Recovering/Resolving]

NARRATIVE: CASE EVENT DATE: 201707
